FAERS Safety Report 4317340-7 (Version None)
Quarter: 2004Q1

REPORT INFORMATION
  Report Type: 
  Country: None (occurrence: None)
  Receive Date: 20040305
  Receipt Date: 20031205
  Transmission Date: 20041129
  Serious: No
  Sender: FDA-Public Use
  Company Number: US-SHR-03-018915

PATIENT
  Age: 50 Year
  Sex: Female
  Weight: 76.6 kg

DRUGS (3)
  1. CAMPATH [Suspect]
     Indication: CHRONIC LYMPHOCYTIC LEUKAEMIA
     Dosage: 3/10/30 MG, INTRAVENOUS
     Route: 042
     Dates: start: 20030701, end: 20030829
  2. TPN (TYROSINE) [Concomitant]
  3. PROCRIT (ERYTHOPOIETIN) [Concomitant]

REACTIONS (2)
  - DIARRHOEA [None]
  - WEIGHT DECREASED [None]
